FAERS Safety Report 7512314-7 (Version None)
Quarter: 2011Q2

REPORT INFORMATION
  Report Type: 
  Country: None (occurrence: None)
  Receive Date: 20110531
  Receipt Date: 20110517
  Transmission Date: 20111010
  Serious: Yes (Other)
  Sender: FDA-Public Use
  Company Number: JP-CELGENEUS-087-21660-11043420

PATIENT
  Sex: Female
  Weight: 67 kg

DRUGS (9)
  1. ATELEC [Concomitant]
     Route: 048
     Dates: start: 20080416
  2. DIOVAN [Concomitant]
     Route: 048
     Dates: start: 20020610
  3. AMARYL [Concomitant]
     Route: 048
     Dates: start: 20090824
  4. FEMARA [Concomitant]
     Indication: BREAST CANCER METASTATIC
     Dosage: 2.5 MILLIGRAM
     Route: 048
     Dates: start: 20101206
  5. ALLOPURINOL [Concomitant]
     Route: 048
     Dates: start: 20020610
  6. AROMASIN [Concomitant]
     Route: 065
  7. GEMZAR [Concomitant]
     Indication: BREAST CANCER METASTATIC
     Dosage: 2000 MILLIGRAM
     Route: 065
     Dates: start: 20110112, end: 20110202
  8. ABRAXANE [Suspect]
     Indication: BREAST CANCER METASTATIC
     Dosage: 400 MILLIGRAM
     Route: 065
     Dates: start: 20110112, end: 20110112
  9. LIPITOR [Concomitant]
     Route: 048
     Dates: start: 20020610

REACTIONS (2)
  - LIMB DISCOMFORT [None]
  - HYPOAESTHESIA [None]
